FAERS Safety Report 8181512-4 (Version None)
Quarter: 2012Q1

REPORT INFORMATION
  Report Type: 
  Country: None (occurrence: None)
  Receive Date: 20120301
  Receipt Date: 20120301
  Transmission Date: 20120608
  Serious: Yes (Hospitalization)
  Sender: FDA-Public Use
  Company Number: None

PATIENT
  Age: 45 Year
  Sex: Male
  Weight: 95.7 kg

DRUGS (1)
  1. NAPROXEN [Suspect]
     Indication: PAIN
     Dosage: 500 MG BID PO
     Route: 048
     Dates: start: 20110422, end: 20120224

REACTIONS (5)
  - ANGIOEDEMA [None]
  - URTICARIA [None]
  - DERMATITIS [None]
  - LIP SWELLING [None]
  - SIMILAR REACTION ON PREVIOUS EXPOSURE TO DRUG [None]
